FAERS Safety Report 13953326 (Version 1)
Quarter: 2017Q3

REPORT INFORMATION
  Report Type: Spontaneous
  Country: RU (occurrence: RU)
  Receive Date: 20170911
  Receipt Date: 20170911
  Transmission Date: 20171128
  Serious: Yes (Hospitalization, Other)
  Sender: FDA-Public Use
  Company Number: RU-B.I. PHARMACEUTICALS,INC./RIDGEFIELD-2017-BI-049055

PATIENT
  Age: 72 Year
  Sex: Male

DRUGS (1)
  1. PRADAXA [Suspect]
     Active Substance: DABIGATRAN ETEXILATE MESYLATE
     Indication: ATRIAL FIBRILLATION
     Route: 048
     Dates: start: 201608

REACTIONS (2)
  - Retinal vein thrombosis [Recovered/Resolved]
  - Activated partial thromboplastin time abnormal [Not Recovered/Not Resolved]

NARRATIVE: CASE EVENT DATE: 201703
